FAERS Safety Report 16184050 (Version 1)
Quarter: 2019Q2

REPORT INFORMATION
  Report Type: Spontaneous
  Country: QA (occurrence: QA)
  Receive Date: 20190411
  Receipt Date: 20190411
  Transmission Date: 20190711
  Serious: Yes (Other)
  Sender: FDA-Public Use
  Company Number: QA-NOVAST LABORATORIES, LTD-QA-2019NOV000223

PATIENT
  Age: 12 Year
  Sex: Female

DRUGS (3)
  1. PROGESTERONE. [Suspect]
     Active Substance: PROGESTERONE
     Indication: MENORRHAGIA
     Dosage: UNK
  2. NORETHINDRONE. [Suspect]
     Active Substance: NORETHINDRONE
     Indication: MENORRHAGIA
     Dosage: UNK
  3. ESTRADIOL. [Suspect]
     Active Substance: ESTRADIOL
     Indication: MENORRHAGIA
     Dosage: UNK

REACTIONS (2)
  - Hemiparesis [Unknown]
  - Thrombotic stroke [Unknown]
